FAERS Safety Report 6381725-8 (Version None)
Quarter: 2009Q3

REPORT INFORMATION
  Report Type: 
  Country: None (occurrence: None)
  Receive Date: 20090930
  Receipt Date: 20090918
  Transmission Date: 20100115
  Serious: Yes (Other)
  Sender: FDA-Public Use
  Company Number: PHEH2009US10225

PATIENT
  Sex: Female

DRUGS (17)
  1. FEMARA [Suspect]
     Dosage: UNK, UNK
     Dates: start: 20070101
  2. LEVOTHYROXINE SODIUM [Concomitant]
     Indication: THYROID DISORDER
     Dosage: UNK, UNK
  3. TYLENOL (CAPLET) [Concomitant]
     Dosage: 650 MG, UNK
  4. NEXIUM [Concomitant]
     Dosage: UNK, UNK
  5. ELIDEL [Concomitant]
     Dosage: 100 MG, UNK
  6. ELESTAT [Concomitant]
     Dosage: UNK, UNK
  7. RESTASIS [Concomitant]
     Dosage: UNK, UNK
  8. GENTEAL                            /00445101/ [Concomitant]
     Dosage: UNK, UNK
  9. KONSYL [Concomitant]
     Dosage: UNK, UNK
  10. MIRALAX [Concomitant]
     Dosage: UNK, UNK
  11. GLUCOSAMINE [Concomitant]
     Dosage: 1500 MG, UNK
  12. CALCIUM [Concomitant]
     Dosage: UNK, UNK
  13. VITAMIN D [Concomitant]
     Dosage: UNK, UNK
  14. ONE A DAY                          /02262701/ [Concomitant]
     Dosage: UNK, DAILY
  15. FISH OIL [Concomitant]
     Dosage: UNK, UNK
  16. DARVOCET-N 100 [Concomitant]
     Dosage: 650 MG, UNK
  17. FIORICET [Concomitant]
     Dosage: UNK, UNK

REACTIONS (9)
  - BONE PAIN [None]
  - CONSTIPATION [None]
  - COUGH [None]
  - DRY EYE [None]
  - DRY MOUTH [None]
  - HEADACHE [None]
  - HOT FLUSH [None]
  - HYPERHIDROSIS [None]
  - KNEE ARTHROPLASTY [None]
